FAERS Safety Report 10658926 (Version 3)
Quarter: 2015Q2

REPORT INFORMATION
  Report Type: Report from Study
  Country: US (occurrence: US)
  Receive Date: 20141217
  Receipt Date: 20150507
  Transmission Date: 20150821
  Serious: Yes (Hospitalization, Other)
  Sender: FDA-Public Use
  Company Number: US-AMGEN-USASL2014097784

PATIENT
  Age: 66 Year
  Sex: Female

DRUGS (2)
  1. ENBREL [Suspect]
     Active Substance: ETANERCEPT
     Indication: PSORIATIC ARTHROPATHY
     Dosage: 50 MG, QWK
     Route: 065
     Dates: start: 201112
  2. ENBREL [Suspect]
     Active Substance: ETANERCEPT
     Indication: PSORIASIS
     Dosage: UNK
     Route: 065

REACTIONS (17)
  - Brain oedema [Recovered/Resolved]
  - Fear [Recovered/Resolved]
  - Cognitive disorder [Recovered/Resolved]
  - Diabetes mellitus [Recovered/Resolved]
  - Joint stiffness [Unknown]
  - Head injury [Recovered/Resolved]
  - Hallucination [Recovered/Resolved]
  - Intracranial pressure increased [Recovered/Resolved]
  - Arthralgia [Not Recovered/Not Resolved]
  - Overweight [Not Recovered/Not Resolved]
  - Headache [Not Recovered/Not Resolved]
  - Seizure [Recovered/Resolved]
  - Psoriasis [Not Recovered/Not Resolved]
  - Loss of consciousness [Recovered/Resolved]
  - Alopecia [Unknown]
  - Fall [Recovered/Resolved]
  - Arthropathy [Recovered/Resolved]

NARRATIVE: CASE EVENT DATE: 2013
